FAERS Safety Report 9769615 (Version 1)
Quarter: 2013Q3

REPORT INFORMATION
  Report Type: Spontaneous
  Country: US (occurrence: None)
  Receive Date: 20130911
  Receipt Date: 20130911
  Transmission Date: 20140515
  Serious: Yes (Hospitalization)
  Sender: FDA-Public Use
  Company Number: VAL_01911_2013

PATIENT
  Age: 64 Year
  Sex: Female
  Weight: 102.4 kg

DRUGS (12)
  1. METOPROLOL [Suspect]
     Indication: PRODUCT USED FOR UNKNOWN INDICATION
  2. ALISKIREN VS PLACEBO-PLACEBO COMP-PLA+ [Suspect]
     Indication: CARDIOVASCULAR DISORDER
     Route: 048
     Dates: start: 20100407
  3. LANTUS [Suspect]
     Indication: PRODUCT USED FOR UNKNOWN INDICATION
     Dosage: DF REGIMEN #1
  4. NOVOLOG (NOT SPECIFIED) [Suspect]
     Indication: PRODUCT USED FOR UNKNOWN INDICATION
     Dosage: DF REGIMEN #1
  5. ADALAT (UNKNOWN) [Concomitant]
  6. LASIX /00032601/ (UNKNOWN) [Concomitant]
  7. IMDUR (UNKNOWN) [Concomitant]
  8. ZOCOR (UNKNOWN) [Concomitant]
  9. COZAAR (UNKNOWN) [Concomitant]
  10. ASPIRIN (UNKNOWN) [Concomitant]
  11. NEPHRON (UNKNOWN) [Concomitant]
  12. TIMOPTIC (UNKNOWN) [Concomitant]

REACTIONS (3)
  - Bradycardia [None]
  - Hypoglycaemia [None]
  - Mental status changes [None]
